FAERS Safety Report 25778640 (Version 1)
Quarter: 2025Q3

REPORT INFORMATION
  Report Type: Spontaneous
  Country: US (occurrence: None)
  Receive Date: 20250908
  Receipt Date: 20250908
  Transmission Date: 20251021
  Serious: No
  Sender: FDA-CTU
  Company Number: None

PATIENT
  Age: 72 Year
  Sex: Female
  Weight: 93.15 kg

DRUGS (2)
  1. DUPIXENT [Suspect]
     Active Substance: DUPILUMAB
     Indication: Eosinophilic oesophagitis
     Dosage: ?300 UG EVERY 2 WEEKS SUBCUTANEOUS ?
     Route: 058
     Dates: start: 20250523, end: 20250908
  2. STELARA [Concomitant]
     Active Substance: USTEKINUMAB
     Dates: start: 20150901

REACTIONS (5)
  - Injection site erythema [None]
  - Injection site pain [None]
  - Injection site mass [None]
  - Asthma [None]
  - Arthralgia [None]

NARRATIVE: CASE EVENT DATE: 20250523
